FAERS Safety Report 23038168 (Version 3)
Quarter: 2025Q3

REPORT INFORMATION
  Report Type: Report from Study
  Country: CA (occurrence: CA)
  Receive Date: 20231006
  Receipt Date: 20250930
  Transmission Date: 20251021
  Serious: Yes (Other)
  Sender: TAKEDA
  Company Number: CA-TAKEDA-2023TUS058663

PATIENT
  Age: 67 Year
  Sex: Male

DRUGS (16)
  1. VEDOLIZUMAB [Suspect]
     Active Substance: VEDOLIZUMAB
     Indication: Colitis ulcerative
  2. VEDOLIZUMAB [Suspect]
     Active Substance: VEDOLIZUMAB
  3. VEDOLIZUMAB [Suspect]
     Active Substance: VEDOLIZUMAB
  4. VEDOLIZUMAB [Suspect]
     Active Substance: VEDOLIZUMAB
  5. DOMPERIDONE [Concomitant]
     Active Substance: DOMPERIDONE
  6. MESALAMINE [Concomitant]
     Active Substance: MESALAMINE
  7. OMEPRAZOLE [Concomitant]
     Active Substance: OMEPRAZOLE
  8. NAPROXEN [Concomitant]
     Active Substance: NAPROXEN
  9. JARDIANCE [Concomitant]
     Active Substance: EMPAGLIFLOZIN
  10. OXAZEPAM [Concomitant]
     Active Substance: OXAZEPAM
  11. INSULIN NOS [Concomitant]
     Active Substance: INSULIN NOS
  12. ROSUVASTATIN [Concomitant]
     Active Substance: ROSUVASTATIN
  13. GLICLAZIDE [Concomitant]
     Active Substance: GLICLAZIDE
  14. FERROUS GLUCONATE [Concomitant]
     Active Substance: FERROUS GLUCONATE
  15. SUCRALFATE [Concomitant]
     Active Substance: SUCRALFATE
  16. METFORMIN [Concomitant]
     Active Substance: METFORMIN HYDROCHLORIDE

REACTIONS (2)
  - Haematochezia [Recovering/Resolving]
  - Blood iron decreased [Recovering/Resolving]
